FAERS Safety Report 20937941 (Version 2)
Quarter: 2022Q2

REPORT INFORMATION
  Report Type: Spontaneous
  Country: CZ (occurrence: CZ)
  Receive Date: 20220609
  Receipt Date: 20220614
  Transmission Date: 20220721
  Serious: Yes (Other)
  Sender: FDA-Public Use
  Company Number: CZ-CELLTRION HEALTHCARE HUNGARY KFT-2022CZ006771

PATIENT
  Sex: Female

DRUGS (8)
  1. DOCETAXEL [Suspect]
     Active Substance: DOCETAXEL
     Indication: Invasive ductal breast carcinoma
     Dosage: 75 MILLIGRAM/SQ. METER (75 MG/M2)
  2. DOCETAXEL [Suspect]
     Active Substance: DOCETAXEL
     Indication: HER2 positive breast cancer
     Dosage: UNK
  3. LETROZOLE [Suspect]
     Active Substance: LETROZOLE
     Indication: Invasive ductal breast carcinoma
     Dosage: UNK
  4. LETROZOLE [Suspect]
     Active Substance: LETROZOLE
     Indication: HER2 positive breast cancer
     Dosage: UNK
  5. TRASTUZUMAB [Suspect]
     Active Substance: TRASTUZUMAB
     Indication: Invasive ductal breast carcinoma
     Dosage: 1800 MILLIGRAM, QW (600 MG S.C. EVERY 3 WEEKS)
     Route: 058
     Dates: start: 201511
  6. TRASTUZUMAB [Suspect]
     Active Substance: TRASTUZUMAB
     Indication: HER2 positive breast cancer
     Dosage: 8 MILLIGRAM/KILOGRAM (8 MG/KG LOADING DOSE)
     Dates: start: 201207
  7. TRASTUZUMAB [Suspect]
     Active Substance: TRASTUZUMAB
     Dosage: 6 MILLIGRAM/KILOGRAM (6 MG/KG MAINTENANCE DOSE)
     Dates: start: 201207
  8. TRASTUZUMAB [Suspect]
     Active Substance: TRASTUZUMAB
     Dosage: 600 MILLIGRAM, Q3W (600 MG EVERY 3 WEEKS)
     Route: 058

REACTIONS (7)
  - Haemoptysis [Unknown]
  - Metastases to lung [Unknown]
  - Metastases to central nervous system [Unknown]
  - Disease progression [Unknown]
  - Telangiectasia [Unknown]
  - Dysgraphia [Unknown]
  - Off label use [Unknown]

NARRATIVE: CASE EVENT DATE: 20120701
